FAERS Safety Report 7035895-9 (Version None)
Quarter: 2010Q4

REPORT INFORMATION
  Report Type: 
  Country: None (occurrence: None)
  Receive Date: 20101007
  Receipt Date: 20101007
  Transmission Date: 20110411
  Serious: Yes (Other)
  Sender: FDA-Public Use
  Company Number: None

PATIENT
  Sex: Male
  Weight: 115.6672 kg

DRUGS (3)
  1. OXYCONTIN [Suspect]
     Indication: BACK PAIN
     Dosage: 1 EVERY 8 HOURS PO
     Route: 048
     Dates: start: 20100910, end: 20101007
  2. OXYCONTIN [Suspect]
     Indication: PAIN
     Dosage: 1 EVERY 8 HOURS PO
     Route: 048
     Dates: start: 20100910, end: 20101007
  3. OXYCONTIN [Suspect]
     Indication: SYRINGOMYELIA
     Dosage: 1 EVERY 8 HOURS PO
     Route: 048
     Dates: start: 20100910, end: 20101007

REACTIONS (3)
  - DRUG INEFFECTIVE [None]
  - NAUSEA [None]
  - PRODUCT FORMULATION ISSUE [None]
